FAERS Safety Report 6695963-8 (Version None)
Quarter: 2010Q2

REPORT INFORMATION
  Report Type: 
  Country: None (occurrence: None)
  Receive Date: 20100412
  Receipt Date: 20090826
  Transmission Date: 20101027
  Serious: Yes (Other)
  Sender: FDA-Public Use
  Company Number: E-09-085 (09-133)

PATIENT
  Sex: Female

DRUGS (3)
  1. PREDNISOLONE [Suspect]
     Indication: ALLERGIC BRONCHITIS
     Dosage: 1 TABLET P.O. DAILY
     Dates: start: 20090501
  2. PREDNISOLONE [Suspect]
     Indication: COUGH
     Dosage: 1 TABLET P.O. DAILY
     Dates: start: 20090501
  3. PROMETHAZINE HCL AND CODEINE [Suspect]
     Indication: COUGH
     Dosage: 1 TEASPOONFUL P.O.. Q6HRS
     Dates: start: 20090731

REACTIONS (1)
  - HYPERGLYCAEMIA [None]
